FAERS Safety Report 8959933 (Version 1)
Quarter: 2012Q4

REPORT INFORMATION
  Report Type: 
  Country: AR (occurrence: AR)
  Receive Date: 20121212
  Receipt Date: 20121212
  Transmission Date: 20130627
  Serious: Yes (Other)
  Sender: FDA-Public Use
  Company Number: PHHY2012AR113387

PATIENT
  Sex: Female

DRUGS (2)
  1. DIOVAN [Suspect]
     Indication: HYPERTENSION
     Dosage: 80 mg, QD
     Route: 048
     Dates: start: 2007, end: 2008
  2. EXFORGE [Suspect]
     Indication: HYPERTENSION
     Dosage: 1 DF(160 mg valsartan/5 mg amlodipine), QD
     Route: 048

REACTIONS (4)
  - Rheumatoid arthritis [Not Recovered/Not Resolved]
  - Hepatotoxicity [Not Recovered/Not Resolved]
  - Feeling abnormal [Unknown]
  - Fatigue [Unknown]
